FAERS Safety Report 11826347 (Version 4)
Quarter: 2016Q1

REPORT INFORMATION
  Report Type: Spontaneous
  Country: US (occurrence: US)
  Receive Date: 20151211
  Receipt Date: 20160314
  Transmission Date: 20160525
  Serious: No
  Sender: FDA-Public Use
  Company Number: US-PFIZER INC-2015419548

PATIENT
  Age: 50 Year
  Sex: Female
  Weight: 79 kg

DRUGS (2)
  1. LYRICA [Suspect]
     Active Substance: PREGABALIN
     Indication: FIBROMYALGIA
     Dosage: 150 MG, 1X/DAY
     Route: 048
     Dates: start: 20060802, end: 200612
  2. LYRICA [Suspect]
     Active Substance: PREGABALIN
     Indication: MIGRAINE

REACTIONS (7)
  - Drug ineffective [Recovered/Resolved]
  - Chondromalacia [Unknown]
  - Fall [Unknown]
  - Weight increased [Recovered/Resolved]
  - Disease progression [Unknown]
  - Mobility decreased [Unknown]
  - Musculoskeletal stiffness [Unknown]

NARRATIVE: CASE EVENT DATE: 20060802
